FAERS Safety Report 9539474 (Version 1)
Quarter: 2013Q3

REPORT INFORMATION
  Report Type: Spontaneous
  Country: JP (occurrence: JP)
  Receive Date: 20130920
  Receipt Date: 20130920
  Transmission Date: 20140515
  Serious: Yes (Disabling, Other)
  Sender: FDA-Public Use
  Company Number: JP-ASTRAZENECA-2013SE68814

PATIENT
  Age: 64 Year
  Sex: Male

DRUGS (1)
  1. ANAPEINE [Suspect]
     Dosage: DOSE UNKNOWN
     Route: 065
     Dates: start: 201103, end: 201103

REACTIONS (2)
  - Diplegia [Unknown]
  - Musculoskeletal disorder [Unknown]
